FAERS Safety Report 5202773-7 (Version None)
Quarter: 2006Q4

REPORT INFORMATION
  Report Type: 
  Country: None (occurrence: None)
  Receive Date: 20061018
  Receipt Date: 20060609
  Transmission Date: 20070319
  Serious: Yes (Hospitalization)
  Sender: FDA-Public Use
  Company Number: 2006-143837-NL

PATIENT
  Age: 73 Year
  Sex: Male
  Weight: 74.8 kg

DRUGS (9)
  1. TICE BCG [Suspect]
     Indication: BLADDER CANCER RECURRENT
     Dosage: CFU INTRAVESICAL
     Route: 043
     Dates: start: 20050101, end: 20050328
  2. TICE BCG [Suspect]
     Indication: BLADDER CANCER RECURRENT
     Dosage: CFU INTRAVESICAL
     Route: 043
     Dates: start: 20060525, end: 20060525
  3. ARICEPT [Concomitant]
  4. SEROQUEL [Concomitant]
  5. ZOLOFT [Concomitant]
  6. NORVASC [Concomitant]
  7. COMBIVENT [Concomitant]
  8. LORTAB [Concomitant]
  9. VESICARE [Concomitant]

REACTIONS (1)
  - TUBERCULOSIS [None]
